FAERS Safety Report 9398307 (Version 5)
Quarter: 2014Q2

REPORT INFORMATION
  Report Type: Spontaneous
  Country: US (occurrence: US)
  Receive Date: 20130712
  Receipt Date: 20140605
  Transmission Date: 20141212
  Serious: Yes (Hospitalization, Other)
  Sender: FDA-Public Use
  Company Number: US-009507513-1307USA004436

PATIENT
  Sex: Female
  Weight: 68.48 kg

DRUGS (5)
  1. FOSAMAX [Suspect]
     Indication: OSTEOPOROSIS
     Dosage: 70 MG, QW
     Route: 048
     Dates: start: 200110, end: 201012
  2. CYANOCOBALAMIN [Concomitant]
     Dosage: 2500 MICROGRAM, QD
     Dates: start: 1990
  3. CALCIUM (UNSPECIFIED) [Concomitant]
     Dosage: 1200 MG, QD
     Dates: start: 1990
  4. VITAMINS (UNSPECIFIED) [Concomitant]
     Dosage: UNK DF, QD
     Dates: start: 1990
  5. NICOTINE [Concomitant]
     Indication: TOBACCO USER
     Route: 062

REACTIONS (25)
  - Femur fracture [Unknown]
  - Femur fracture [Unknown]
  - Intramedullary rod insertion [Unknown]
  - Intramedullary rod insertion [Unknown]
  - Spinal fusion surgery [Unknown]
  - Spinal fusion surgery [Unknown]
  - Osteonecrosis [Unknown]
  - Aneurysm ruptured [Unknown]
  - Intervertebral disc degeneration [Unknown]
  - Rheumatoid arthritis [Unknown]
  - Hypertension [Unknown]
  - Glossitis [Unknown]
  - Atelectasis [Unknown]
  - Pneumonia [Unknown]
  - Blood pressure decreased [Unknown]
  - White blood cells urine [Unknown]
  - Fibromyalgia [Unknown]
  - Osteopenia [Unknown]
  - Ecchymosis [Unknown]
  - Arterial aneurysm repair [Unknown]
  - Pyrexia [Unknown]
  - Oedema peripheral [Unknown]
  - Abdominal distension [Unknown]
  - Back pain [Unknown]
  - Pain in extremity [Unknown]
